FAERS Safety Report 16221432 (Version 1)
Quarter: 2019Q2

REPORT INFORMATION
  Report Type: Spontaneous
  Country: BR (occurrence: BR)
  Receive Date: 20190422
  Receipt Date: 20190422
  Transmission Date: 20190711
  Serious: Yes (Other)
  Sender: FDA-Public Use
  Company Number: BR-SA-2019SA090484

PATIENT
  Age: 60 Year
  Sex: Male
  Weight: 115 kg

DRUGS (11)
  1. THIOCTACID [THIOCTIC ACID] [Concomitant]
     Dosage: UNK
     Route: 065
  2. APIDRA SOLOSTAR [Suspect]
     Active Substance: INSULIN GLULISINE
     Dosage: 50 IU TO 8 IU
     Route: 065
     Dates: start: 2017
  3. LANTUS [Suspect]
     Active Substance: INSULIN GLARGINE
     Indication: DIABETES MELLITUS
     Dosage: 40 IU
     Route: 065
     Dates: start: 2008
  4. LOSARTAN. [Concomitant]
     Active Substance: LOSARTAN
     Indication: HYPERTENSION
     Dosage: 2 TABLETS, QD
     Route: 065
     Dates: start: 2008
  5. GLIFAGE [Concomitant]
     Active Substance: METFORMIN HYDROCHLORIDE
     Dosage: UNK UNK, BID
     Route: 065
  6. DIAMICRON [Concomitant]
     Active Substance: GLICLAZIDE
     Dosage: UNK
     Route: 065
  7. VASOGARD [Concomitant]
     Active Substance: CILOSTAZOL
     Dosage: UNK
     Route: 065
  8. TOUJEO [Suspect]
     Active Substance: INSULIN GLARGINE
     Dosage: UNK
     Route: 065
     Dates: start: 2018
  9. CLORDOX [Concomitant]
     Dosage: UNK
     Route: 065
  10. LORAX [LORAZEPAM] [Concomitant]
     Indication: SOMNOLENCE
     Dosage: UNK
     Route: 065
  11. INDAPAMIDE. [Concomitant]
     Active Substance: INDAPAMIDE
     Dosage: UNK
     Route: 065

REACTIONS (6)
  - Incorrect dose administered [Unknown]
  - Osteoporotic fracture [Unknown]
  - Malaise [Recovered/Resolved]
  - Dengue fever [Recovering/Resolving]
  - Hyperglycaemia [Unknown]
  - Hypoglycaemia [Recovered/Resolved]

NARRATIVE: CASE EVENT DATE: 20190331
